FAERS Safety Report 13608129 (Version 6)
Quarter: 2018Q3

REPORT INFORMATION
  Report Type: Report from Study
  Country: FR (occurrence: FR)
  Receive Date: 20170602
  Receipt Date: 20180720
  Transmission Date: 20181010
  Serious: Yes (Life-Threatening, Hospitalization)
  Sender: FDA-Public Use
  Company Number: FR-CELGENEUS-FRA-20170500644

PATIENT
  Age: 78 Year
  Sex: Female
  Weight: 56 kg

DRUGS (12)
  1. IDARUBICIN [Suspect]
     Active Substance: IDARUBICIN
     Indication: ACUTE MYELOID LEUKAEMIA
     Route: 041
     Dates: start: 20170405, end: 20170405
  2. IDARUBICIN [Suspect]
     Active Substance: IDARUBICIN
     Route: 041
     Dates: start: 20170503, end: 20170503
  3. FOLIC ACID. [Concomitant]
     Active Substance: FOLIC ACID
     Indication: PRODUCT USED FOR UNKNOWN INDICATION
     Dosage: 3.5714 MILLIGRAM
     Route: 065
  4. VALACICLOVIR [Concomitant]
     Active Substance: VALACYCLOVIR HYDROCHLORIDE
     Indication: PROPHYLAXIS
     Route: 048
     Dates: start: 20170424, end: 20170426
  5. CIFLOX [Concomitant]
     Active Substance: CIPROFLOXACIN
     Indication: PYREXIA
     Route: 065
  6. BACTRIM [Concomitant]
     Active Substance: SULFAMETHOXAZOLE\TRIMETHOPRIM
     Indication: PROPHYLAXIS
     Dosage: 1 TAB
     Route: 048
     Dates: start: 20170424
  7. AZACITIDINE. [Suspect]
     Active Substance: AZACITIDINE
     Route: 058
     Dates: start: 20170424, end: 20170502
  8. ACIDE FOLIQUE [Concomitant]
     Active Substance: FOLIC ACID
     Indication: PROPHYLAXIS
     Dosage: 25 MG
     Route: 048
  9. AZACITIDINE. [Suspect]
     Active Substance: AZACITIDINE
     Indication: ACUTE MYELOID LEUKAEMIA
     Route: 058
     Dates: start: 20170327, end: 20170404
  10. VALACICLOVIR [Concomitant]
     Active Substance: VALACYCLOVIR HYDROCHLORIDE
     Dosage: 1000 MILLIGRAM
     Route: 065
  11. PRIMPERAN [Concomitant]
     Active Substance: METOCLOPRAMIDE HYDROCHLORIDE
     Indication: NAUSEA
     Route: 065
  12. INNOHEP [Concomitant]
     Active Substance: TINZAPARIN SODIUM
     Indication: VARICOSE VEIN
     Dosage: 10000 IU
     Route: 058
     Dates: start: 20170424, end: 20170426

REACTIONS (4)
  - Pulmonary toxicity [Not Recovered/Not Resolved]
  - Febrile bone marrow aplasia [Recovered/Resolved with Sequelae]
  - Pulmonary embolism [Not Recovered/Not Resolved]
  - Lung infection [Recovered/Resolved]

NARRATIVE: CASE EVENT DATE: 20170426
